FAERS Safety Report 23030795 (Version 2)
Quarter: 2025Q3

REPORT INFORMATION
  Report Type: Report from Study
  Country: US (occurrence: US)
  Receive Date: 20231005
  Receipt Date: 20250829
  Transmission Date: 20251020
  Serious: No
  Sender: VIIV
  Company Number: US-VIIV HEALTHCARE LIMITED-US2023132339

PATIENT
  Sex: Male

DRUGS (3)
  1. CABOTEGRAVIR [Suspect]
     Active Substance: CABOTEGRAVIR
     Indication: HIV infection
  2. CABOTEGRAVIR [Suspect]
     Active Substance: CABOTEGRAVIR
  3. CABOTEGRAVIR [Suspect]
     Active Substance: CABOTEGRAVIR

REACTIONS (2)
  - Product dose omission issue [Unknown]
  - Off label use [Unknown]
